FAERS Safety Report 16238890 (Version 2)
Quarter: 2019Q2

REPORT INFORMATION
  Report Type: Spontaneous
  Country: DE (occurrence: DE)
  Receive Date: 20190425
  Receipt Date: 20190531
  Transmission Date: 20190711
  Serious: Yes (Hospitalization, Other)
  Sender: FDA-Public Use
  Company Number: DE-AMGEN-DEUSP2019063945

PATIENT
  Age: 38 Year
  Sex: Female

DRUGS (10)
  1. VITAMIN D [VITAMIN D NOS] [Concomitant]
     Active Substance: VITAMIN D NOS
     Dosage: UNK UNK, QD
     Route: 048
     Dates: start: 201612, end: 201712
  2. TAMOXIFEN [Suspect]
     Active Substance: TAMOXIFEN
     Indication: PRODUCT USED FOR UNKNOWN INDICATION
     Dosage: UNK (2 MONTHS)
     Route: 065
  3. ZOLADEX [Suspect]
     Active Substance: GOSERELIN ACETATE
     Indication: GONADOTROPHIN DEFICIENCY
     Dosage: UNK
     Route: 065
     Dates: start: 20170719, end: 20171115
  4. FASLODEX [Suspect]
     Active Substance: FULVESTRANT
     Indication: BREAST CANCER METASTATIC
     Dosage: UNK
     Route: 030
     Dates: start: 20170807, end: 20171214
  5. SELENASE [SODIUM SELENITE] [Concomitant]
     Dosage: UNK UNK, QD
     Route: 048
     Dates: start: 201612, end: 201712
  6. IBRANCE [Suspect]
     Active Substance: PALBOCICLIB
     Indication: BREAST CANCER METASTATIC
     Dosage: UNK
     Route: 048
     Dates: start: 20170807, end: 20171214
  7. XGEVA [Suspect]
     Active Substance: DENOSUMAB
     Indication: METASTASES TO BONE
     Dosage: UNK UNK, Q4WK
     Route: 030
     Dates: start: 20170726, end: 20171115
  8. VITAMIN C ACID [Concomitant]
     Active Substance: ASCORBIC ACID
     Dosage: UNK UNK, QD
     Route: 048
     Dates: start: 201612, end: 201712
  9. EQUINOVO [Concomitant]
     Dosage: UNK UNK, QD
     Route: 048
     Dates: start: 201612, end: 201712
  10. MAGNESIUM [Concomitant]
     Active Substance: MAGNESIUM
     Dosage: UNK UNK, QD
     Route: 048
     Dates: start: 201710, end: 201712

REACTIONS (5)
  - Maternal exposure during pregnancy [Unknown]
  - Gastrointestinal disorder [Unknown]
  - Sciatica [Unknown]
  - Fatigue [Unknown]
  - Metastasis [Unknown]
